FAERS Safety Report 14328234 (Version 3)
Quarter: 2019Q2

REPORT INFORMATION
  Report Type: Spontaneous
  Country: IE (occurrence: IE)
  Receive Date: 20171227
  Receipt Date: 20190408
  Transmission Date: 20190711
  Serious: Yes (Life-Threatening, Hospitalization, Other)
  Sender: FDA-Public Use
  Company Number: IE-MYLANLABS-2017M1081019

PATIENT
  Age: 52 Year
  Sex: Female

DRUGS (1)
  1. ROCURONIUM [Suspect]
     Active Substance: ROCURONIUM BROMIDE
     Indication: HYPOVENTILATION
     Dosage: UNK

REACTIONS (8)
  - Respiratory arrest [Recovering/Resolving]
  - Anaphylactic reaction [Recovering/Resolving]
  - Hypotension [Recovered/Resolved]
  - Oxygen saturation decreased [Recovered/Resolved]
  - Peripheral circulatory failure [Recovering/Resolving]
  - Bradycardia [Recovering/Resolving]
  - Drug ineffective [Recovered/Resolved]
  - Condition aggravated [Recovered/Resolved]
